FAERS Safety Report 9300638 (Version 1)
Quarter: 2013Q2

REPORT INFORMATION
  Report Type: Spontaneous
  Country: US (occurrence: None)
  Receive Date: 20130520
  Receipt Date: 20130520
  Transmission Date: 20140414
  Serious: Yes (Death, Hospitalization)
  Sender: FDA-Public Use
  Company Number: None

PATIENT
  Age: 70 Year
  Sex: Male
  Weight: 110.67 kg

DRUGS (1)
  1. PRADAXA [Suspect]
     Indication: DRUG THERAPY
     Dates: start: 20130311, end: 20130407

REACTIONS (5)
  - Swelling [None]
  - Arthralgia [None]
  - Chromaturia [None]
  - Haematochezia [None]
  - Device related sepsis [None]
